FAERS Safety Report 6761402-1 (Version None)
Quarter: 2010Q2

REPORT INFORMATION
  Report Type: 
  Country: None (occurrence: None)
  Receive Date: 20100608
  Receipt Date: 20100603
  Transmission Date: 20101027
  Serious: Yes (Life-Threatening, Hospitalization)
  Sender: FDA-Public Use
  Company Number: JP-ROCHE-657511

PATIENT
  Sex: Female
  Weight: 62 kg

DRUGS (25)
  1. TOCILIZUMAB [Suspect]
     Indication: RHEUMATOID ARTHRITIS
     Route: 041
     Dates: start: 20090430, end: 20090430
  2. TOCILIZUMAB [Suspect]
     Route: 041
     Dates: start: 20090528, end: 20090528
  3. TOCILIZUMAB [Suspect]
     Route: 041
     Dates: start: 20090625, end: 20090625
  4. TOCILIZUMAB [Suspect]
     Dosage: DISCONTINUED.
     Route: 041
     Dates: start: 20090723, end: 20090723
  5. METHOTREXATE [Suspect]
     Indication: RHEUMATOID ARTHRITIS
     Dosage: DISCONTINUED.
     Route: 048
     Dates: start: 20070601, end: 20090818
  6. PREDNISOLONE [Concomitant]
     Dosage: FORM:PERORAL AGENT.
     Route: 048
     Dates: end: 20090511
  7. PREDNISOLONE [Concomitant]
     Route: 048
     Dates: start: 20090512
  8. PREDNISOLONE [Concomitant]
     Dosage: FIRST-SIXTH COURSE OF R-CHOP THERAPY.
     Route: 048
  9. MOBIC [Concomitant]
     Route: 048
     Dates: end: 20090830
  10. FOLIAMIN [Concomitant]
     Dosage: FORM:PERORAL AGENT.
     Route: 048
     Dates: end: 20090830
  11. KETOPROFEN [Concomitant]
     Dosage: FORM: TAPE
     Route: 061
  12. AMLODIN [Concomitant]
     Route: 048
  13. BUSCOPAN [Concomitant]
     Route: 048
  14. ZYLORIC [Concomitant]
     Route: 048
  15. SELBEX [Concomitant]
     Route: 048
  16. OMEPRAL [Concomitant]
     Route: 048
  17. CYANOCOBALAMIN [Concomitant]
     Route: 048
  18. LENDORMIN [Concomitant]
     Route: 048
  19. MAGMITT [Concomitant]
     Route: 048
  20. PURSENNID [Concomitant]
     Route: 048
  21. PURSENNID [Concomitant]
     Route: 048
  22. RITUXAN [Concomitant]
     Dosage: FIRST-SIXTH COURSE OF R-CHOP THERAPY.
  23. ENDOXAN [Concomitant]
     Dosage: FIRST-SIXTH COURSE OF R-CHOP THERAPY.
  24. ADRIACIN [Concomitant]
     Dosage: FIRST-SIXTH COURSE OF R-CHOP THERAPY.
  25. ONCOVIN [Concomitant]
     Dosage: FIRST-SIXTH COURSE OF R-CHOP THERAPY.

REACTIONS (1)
  - DIFFUSE LARGE B-CELL LYMPHOMA STAGE III [None]
